FAERS Safety Report 4352555-3 (Version None)
Quarter: 2004Q2

REPORT INFORMATION
  Report Type: 
  Country: None (occurrence: None)
  Receive Date: 20040427
  Receipt Date: 20040112
  Transmission Date: 20050107
  Serious: No
  Sender: FDA-Public Use
  Company Number: WAES 0401USA00801

PATIENT
  Sex: Female

DRUGS (4)
  1. EMEND [Suspect]
     Indication: CHEMOTHERAPY
     Dosage: SEE IMAGE
     Route: 048
  2. EMEND [Suspect]
     Indication: PROPHYLAXIS
     Dosage: SEE IMAGE
     Route: 048
  3. ADRIAMYCIN PFS [Concomitant]
  4. CYTOXAN [Concomitant]

REACTIONS (2)
  - FEELING ABNORMAL [None]
  - INCREASED UPPER AIRWAY SECRETION [None]
